FAERS Safety Report 8041755-7 (Version None)
Quarter: 2012Q1

REPORT INFORMATION
  Report Type: 
  Country: None (occurrence: None)
  Receive Date: 20120112
  Receipt Date: 20111122
  Transmission Date: 20120608
  Serious: Yes (Death)
  Sender: FDA-Public Use
  Company Number: PHHY2010US43469

PATIENT
  Sex: Female

DRUGS (3)
  1. VIDAZA [Concomitant]
  2. EXJADE [Suspect]
     Indication: NEOPLASM
     Dosage: 1500 MG, QD
     Route: 048
  3. EXJADE [Suspect]
     Dosage: 2000 MG, QD
     Route: 048

REACTIONS (3)
  - TOOTH DISCOLOURATION [None]
  - DEATH [None]
  - DIARRHOEA [None]
